FAERS Safety Report 6571644-6 (Version None)
Quarter: 2010Q1

REPORT INFORMATION
  Report Type: 
  Country: None (occurrence: None)
  Receive Date: 20100205
  Receipt Date: 20100125
  Transmission Date: 20100710
  Serious: Yes (Hospitalization, Other)
  Sender: FDA-Public Use
  Company Number: PHHY2010IE01859

PATIENT
  Sex: Female

DRUGS (1)
  1. CLOZARIL [Suspect]
     Indication: SCHIZOPHRENIA
     Dosage: UNK
     Dates: start: 20020403

REACTIONS (4)
  - FALL [None]
  - JOINT DISLOCATION [None]
  - ORTHOPEDIC PROCEDURE [None]
  - UPPER LIMB FRACTURE [None]
